FAERS Safety Report 10233593 (Version 1)
Quarter: 2014Q2

REPORT INFORMATION
  Report Type: Spontaneous
  Country: FR (occurrence: FR)
  Receive Date: 20140612
  Receipt Date: 20140612
  Transmission Date: 20141212
  Serious: Yes (Hospitalization, Other)
  Sender: FDA-Public Use
  Company Number: FR-ASTRAZENECA-2014SE39813

PATIENT
  Age: 3535 Week
  Sex: Female

DRUGS (5)
  1. INEXIUM [Suspect]
     Route: 048
     Dates: start: 2014, end: 20140415
  2. VALIUM [Suspect]
     Route: 048
     Dates: start: 2014, end: 20140415
  3. EFFEXOR [Suspect]
     Route: 048
     Dates: start: 201302, end: 20140415
  4. THERALENE [Suspect]
     Route: 048
     Dates: start: 2014, end: 20140415
  5. LEVOTHYROX [Concomitant]

REACTIONS (11)
  - Leukocytosis [Unknown]
  - Pancreatitis [Recovered/Resolved]
  - Abdominal pain [Unknown]
  - Confusional state [Unknown]
  - Chest pain [Unknown]
  - Hepatic steatosis [Unknown]
  - Hepatomegaly [Unknown]
  - Lipase increased [Unknown]
  - Cholestasis [Unknown]
  - Abdominal pain upper [Unknown]
  - Therapy cessation [Unknown]
